FAERS Safety Report 8321293-4 (Version None)
Quarter: 2012Q2

REPORT INFORMATION
  Report Type: 
  Country: None (occurrence: None)
  Receive Date: 20120430
  Receipt Date: 20120420
  Transmission Date: 20120825
  Serious: Yes (Other)
  Sender: FDA-Public Use
  Company Number: US-BAYER-2011-035823

PATIENT
  Age: 18 Year
  Sex: Female
  Weight: 58.957 kg

DRUGS (5)
  1. YASMIN [Suspect]
     Indication: CONTRACEPTION
     Dosage: UNK
     Route: 048
     Dates: start: 20051101, end: 20100101
  2. YASMIN [Suspect]
     Indication: DYSMENORRHOEA
  3. NULEV [Concomitant]
     Dosage: 0.125 MG, PRN
     Route: 048
  4. YASMIN [Suspect]
  5. ACIPHEX [Concomitant]
     Dosage: 20 MG, QD
     Route: 048

REACTIONS (7)
  - EMOTIONAL DISTRESS [None]
  - CHOLECYSTITIS CHRONIC [None]
  - FEAR [None]
  - ANXIETY [None]
  - PSYCHOLOGICAL TRAUMA [None]
  - GALLBLADDER DISORDER [None]
  - PAIN [None]
